FAERS Safety Report 4643558-X (Version None)
Quarter: 2005Q2

REPORT INFORMATION
  Report Type: 
  Country: None (occurrence: None)
  Receive Date: 20050331
  Receipt Date: 20050131
  Transmission Date: 20051028
  Serious: No
  Sender: FDA-Public Use
  Company Number: 05P-163-0288888-00

PATIENT
  Age: 60 Year
  Sex: Female
  Weight: 71.6683 kg

DRUGS (8)
  1. HUMIRA 40 MG/ 0.8 ML PRE-FILLED HYRINGE (HUMIRA) (ADALIMUMAB)  (ADALIM [Suspect]
     Indication: RHEUMATOID ARTHRITIS
     Dosage: 40 MG, 1 IN 2 WK, SUBCUTANEOUS
     Route: 058
     Dates: start: 20030101, end: 20041229
  2. METHOTREXATE [Concomitant]
  3. HYDROCORTISONE [Concomitant]
  4. QUINAPRIL HCL [Concomitant]
  5. FUROSEMIDE [Concomitant]
  6. ESOMEPRAZOLE [Concomitant]
  7. ASPIRIN [Concomitant]
  8. ANTIBIOTICS [Concomitant]

REACTIONS (3)
  - CHEST PAIN [None]
  - GASTROENTERITIS VIRAL [None]
  - PULMONARY FIBROSIS [None]
